FAERS Safety Report 8959906 (Version 2)
Quarter: 2013Q2

REPORT INFORMATION
  Report Type: Report from Study
  Country: JP (occurrence: JP)
  Receive Date: 20121211
  Receipt Date: 20130425
  Transmission Date: 20140414
  Serious: Yes (Hospitalization, Other)
  Sender: FDA-Public Use
  Company Number: JP-009507513-1212JPN002918

PATIENT
  Age: 64 Year
  Sex: Male
  Weight: 71 kg

DRUGS (6)
  1. PEGINTRON [Suspect]
     Indication: CHRONIC HEPATITIS C
     Dosage: 1.5 MICROGRAM PER KILOGRAM, QW
     Route: 058
     Dates: start: 20120530, end: 20120808
  2. PEGINTRON [Suspect]
     Dosage: 0.7 MICROGRAM PER KILOGRAM, QW
     Route: 058
     Dates: start: 20120822, end: 20120822
  3. REBETOL [Suspect]
     Indication: CHRONIC HEPATITIS C
     Dosage: 600 MG, QD
     Route: 048
     Dates: start: 20120530, end: 20120815
  4. TELAVIC [Suspect]
     Indication: CHRONIC HEPATITIS C
     Dosage: 2250 MG, QD
     Route: 048
     Dates: start: 20120530, end: 20120815
  5. MYSLEE [Concomitant]
     Indication: INSOMNIA
     Dosage: 5 MG, QD
     Route: 048
  6. FEBURIC [Concomitant]
     Indication: HYPERURICAEMIA
     Dosage: 20 MG, QD
     Route: 048
     Dates: start: 20120606, end: 20120822

REACTIONS (2)
  - Anaemia [Recovered/Resolved]
  - Haemoglobin decreased [Recovered/Resolved]
